FAERS Safety Report 7224403-5 (Version None)
Quarter: 2011Q1

REPORT INFORMATION
  Report Type: 
  Country: None (occurrence: None)
  Receive Date: 20110113
  Receipt Date: 20101230
  Transmission Date: 20110831
  Serious: Yes (Hospitalization, Other)
  Sender: FDA-Public Use
  Company Number: FR-CELGENEUS-056-21880-10120502

PATIENT
  Sex: Male

DRUGS (12)
  1. BACTRIM [Concomitant]
     Route: 065
  2. CIPROFLOXACIN HYDROCHLORIDE [Concomitant]
     Route: 065
     Dates: start: 20101011
  3. REVLIMID [Suspect]
     Route: 048
     Dates: start: 20101025, end: 20101108
  4. ZELITREX [Concomitant]
     Route: 065
  5. SPECIAFOLDINE [Concomitant]
     Route: 065
  6. DEXAMETHASONE [Concomitant]
     Route: 065
     Dates: start: 20101025
  7. FLAGYL [Concomitant]
     Route: 065
     Dates: start: 20101011
  8. VANCOMYCIN [Concomitant]
     Route: 065
  9. PYOSTACINE [Concomitant]
     Route: 065
     Dates: start: 20100924
  10. DEXAMETHASONE [Concomitant]
     Indication: MULTIPLE MYELOMA
     Route: 065
     Dates: start: 20100819
  11. REVLIMID [Suspect]
     Indication: MULTIPLE MYELOMA
     Route: 048
     Dates: start: 20100819, end: 20100923
  12. VELCADE [Concomitant]
     Indication: MULTIPLE MYELOMA
     Route: 065
     Dates: start: 20100801

REACTIONS (4)
  - MUSCULAR WEAKNESS [None]
  - DYSPHONIA [None]
  - VIITH NERVE PARALYSIS [None]
  - DIPLOPIA [None]
